FAERS Safety Report 8157374-8 (Version None)
Quarter: 2012Q1

REPORT INFORMATION
  Report Type: 
  Country: None (occurrence: None)
  Receive Date: 20120103
  Receipt Date: 20110930
  Transmission Date: 20120608
  Serious: No
  Sender: FDA-Public Use
  Company Number: AE-2011-001944

PATIENT
  Age: 69 Year
  Sex: Female
  Weight: 73.9363 kg

DRUGS (6)
  1. INCIVEK [Suspect]
     Dosage: 2250 MG (750 MG,1 IN 8 HR) ,ORAL
     Route: 048
     Dates: start: 20110927
  2. PEGASYS [Concomitant]
  3. LEXAPRO [Concomitant]
  4. ATENOLOL [Concomitant]
  5. RIBAVIRIN [Concomitant]
  6. OMEPRAZOLE [Concomitant]

REACTIONS (2)
  - DECREASED APPETITE [None]
  - ANORECTAL DISCOMFORT [None]
